FAERS Safety Report 6702370-8 (Version None)
Quarter: 2010Q2

REPORT INFORMATION
  Report Type: 
  Country: None (occurrence: None)
  Receive Date: 20100429
  Receipt Date: 20100415
  Transmission Date: 20101027
  Serious: No
  Sender: FDA-Public Use
  Company Number: AU-ELI_LILLY_AND_COMPANY-AU201003002907

PATIENT
  Sex: Female

DRUGS (2)
  1. FORTEO [Suspect]
     Indication: OSTEOPOROSIS
     Dosage: 20 UG, DAILY (1/D)
     Route: 065
     Dates: start: 20091118, end: 20100127
  2. CITRACAL [Concomitant]
     Dosage: 250 MG, 2/D

REACTIONS (4)
  - BACK PAIN [None]
  - DIZZINESS [None]
  - MALAISE [None]
  - NAUSEA [None]
